FAERS Safety Report 4897618-9 (Version None)
Quarter: 2006Q1

REPORT INFORMATION
  Report Type: 
  Country: None (occurrence: None)
  Receive Date: 20060201
  Receipt Date: 20060123
  Transmission Date: 20060701
  Serious: Yes (Hospitalization, Disabling, Other)
  Sender: FDA-Public Use
  Company Number: JP-JNJFOC-20051205340

PATIENT
  Sex: Male

DRUGS (7)
  1. ITRIZOLE [Suspect]
     Route: 048
  2. ITRIZOLE [Suspect]
     Route: 048
  3. ITRIZOLE [Suspect]
     Indication: NAIL TINEA
     Route: 048
  4. FAMOTIDINE [Concomitant]
     Route: 048
     Dates: start: 20051031
  5. VALSARTAN [Concomitant]
     Indication: HYPERTENSION
     Route: 048
     Dates: start: 20051201
  6. OMEPRAZOLE [Concomitant]
     Route: 048
     Dates: start: 20051201
  7. ITOPRIDE HYDROCHLORIDE [Concomitant]
     Route: 048
     Dates: start: 20051201

REACTIONS (1)
  - RENAL FAILURE ACUTE [None]
